FAERS Safety Report 5106078-4 (Version None)
Quarter: 2006Q3

REPORT INFORMATION
  Report Type: 
  Country: None (occurrence: None)
  Receive Date: 20060912
  Receipt Date: 20060830
  Transmission Date: 20061208
  Serious: Yes (Life-Threatening, Hospitalization, Other)
  Sender: FDA-Public Use
  Company Number: 2006107544

PATIENT
  Sex: Female
  Weight: 65.318 kg

DRUGS (7)
  1. DEPO-MEDROL [Suspect]
     Indication: OSTEOARTHRITIS
     Dates: start: 20050101
  2. DEPO-MEDROL [Suspect]
     Indication: PAIN
     Dates: start: 20050101
  3. NEURONTIN [Suspect]
     Indication: PAIN
     Dosage: ORAL
     Route: 048
  4. VIOXX [Suspect]
     Indication: DRUG USE FOR UNKNOWN INDICATION
  5. PAXIL [Concomitant]
  6. XANAX [Concomitant]
  7. ENALAPRIL MALEATE [Concomitant]

REACTIONS (10)
  - ACCIDENT AT WORK [None]
  - AMNESIA [None]
  - BLOOD PRESSURE INCREASED [None]
  - CRYING [None]
  - CYST REMOVAL [None]
  - DEPRESSION [None]
  - HEADACHE [None]
  - INTERVERTEBRAL DISC PROTRUSION [None]
  - MYOCARDIAL INFARCTION [None]
  - OSTEOARTHRITIS [None]
